FAERS Safety Report 8471546-4 (Version None)
Quarter: 2012Q2

REPORT INFORMATION
  Report Type: 
  Country: None (occurrence: None)
  Receive Date: 20120627
  Receipt Date: 20120620
  Transmission Date: 20120825
  Serious: Yes (Other)
  Sender: FDA-Public Use
  Company Number: US-BRISTOL-MYERS SQUIBB COMPANY-16700205

PATIENT
  Age: 70 Year
  Sex: Female
  Weight: 60 kg

DRUGS (14)
  1. FOLIC ACID [Concomitant]
     Dates: start: 20110719
  2. LEVOTHYROXINE [Concomitant]
     Dates: start: 19650101
  3. COMPAZINE [Concomitant]
     Dates: start: 20110809
  4. RAMUCIRUMAB [Suspect]
     Indication: NON-SMALL CELL LUNG CANCER
     Route: 042
     Dates: start: 20110802
  5. VITAMIN B-12 [Concomitant]
     Dates: start: 20110719
  6. NITROGLYCERIN [Concomitant]
     Dates: start: 20100201
  7. NORTRIPTYLINE HYDROCHLORIDE [Concomitant]
     Dates: start: 19830101
  8. CRESTOR [Concomitant]
     Dates: start: 20090101
  9. MORPHINE [Concomitant]
     Dates: start: 20110627
  10. PEMETREXED DISODIUM [Suspect]
     Indication: NON-SMALL CELL LUNG CANCER
     Route: 042
     Dates: start: 20110802
  11. MS CONTIN [Concomitant]
     Dates: start: 20110627
  12. SENOKOT [Concomitant]
     Dates: start: 20110621
  13. CARBOPLATIN [Suspect]
     Indication: NON-SMALL CELL LUNG CANCER
     Dosage: 1 DF = AUC6:PATIENT RECEIVED 752 MG
     Route: 042
     Dates: start: 20110802
  14. DEXAMETHASONE [Concomitant]
     Dates: start: 20110719

REACTIONS (1)
  - INCORRECT DOSE ADMINISTERED [None]
